FAERS Safety Report 15564729 (Version 4)
Quarter: 2019Q2

REPORT INFORMATION
  Report Type: Spontaneous
  Country: US (occurrence: US)
  Receive Date: 20181030
  Receipt Date: 20190606
  Transmission Date: 20190711
  Serious: No
  Sender: FDA-Public Use
  Company Number: US-PFIZER INC-2016531516

PATIENT
  Age: 87 Year
  Sex: Female
  Weight: 68.95 kg

DRUGS (16)
  1. LYRICA [Suspect]
     Active Substance: PREGABALIN
     Dosage: 300 MG, 1X/DAY
     Route: 048
  2. PROBIOTIC [Concomitant]
     Active Substance: PROBIOTICS NOS
     Dosage: UNK
     Route: 048
  3. CYMBALTA [Concomitant]
     Active Substance: DULOXETINE HYDROCHLORIDE
     Dosage: UNK
  4. LYRICA [Suspect]
     Active Substance: PREGABALIN
     Dosage: 600 MG, DAILY (FOUR 150 MG BEFORE BED)
  5. MIRALAX [Concomitant]
     Active Substance: POLYETHYLENE GLYCOL 3350
     Dosage: 1 DF, 1X/DAY [1 PACKET MIXED WITH 8 OUNCES OF FLUID]
     Route: 048
  6. LYRICA [Suspect]
     Active Substance: PREGABALIN
     Indication: PARAESTHESIA
     Dosage: 375 MG, DAILY, (ONE 75 MG EVERY AM, TWO 75 MG EVERY 5PM AND TWO 75 MG EVERY 8PM FOR 30 DAYS)
     Route: 048
  7. LYRICA [Suspect]
     Active Substance: PREGABALIN
     Dosage: 300 MG, 1X/DAY (ONE QHS (EVERY NIGHT AT BEDTIME))
  8. LYRICA [Suspect]
     Active Substance: PREGABALIN
     Dosage: 1200 MG, 1X/DAY (300 MG 4 CAPSULES A DAY AT BEDTIME BY MOUTH)
     Route: 048
  9. LYRICA [Suspect]
     Active Substance: PREGABALIN
     Indication: DYSAESTHESIA
     Dosage: 75MG, 1-2 CAPSULES TID
     Route: 048
  10. HORIZANT [Concomitant]
     Active Substance: GABAPENTIN ENACARBIL
     Dosage: 600 MG, IN THE EVENING WITH FOOD
     Route: 048
  11. HORIZANT [Concomitant]
     Active Substance: GABAPENTIN ENACARBIL
     Dosage: 300 MG, IN THE EVENING WITH FOOD
     Route: 048
  12. LEVOTHYROXINE. [Concomitant]
     Active Substance: LEVOTHYROXINE
     Dosage: UNK
  13. LEVOTHYROXINE SODIUM. [Concomitant]
     Active Substance: LEVOTHYROXINE SODIUM
     Dosage: 88 UG, DAILY [QD]
     Route: 048
  14. LINZESS [Concomitant]
     Active Substance: LINACLOTIDE
     Dosage: 145 UG, 1X/DAY
     Route: 048
  15. LYRICA [Suspect]
     Active Substance: PREGABALIN
     Dosage: 150 MG, 2X/DAY
     Route: 048
  16. LYRICA [Suspect]
     Active Substance: PREGABALIN
     Dosage: 300 MG, 1X/DAY (75 MG (FOUR) PO QHS (EVERY NIGHT AT BEDTIME))
     Route: 048

REACTIONS (2)
  - Intentional product misuse [Unknown]
  - Overdose [Unknown]
